FAERS Safety Report 9995556 (Version 1)
Quarter: 2014Q1

REPORT INFORMATION
  Report Type: Spontaneous
  Country: IE (occurrence: IE)
  Receive Date: 20140311
  Receipt Date: 20140311
  Transmission Date: 20141002
  Serious: Yes (Other)
  Sender: FDA-Public Use
  Company Number: IE-PFIZER INC-2014062526

PATIENT
  Age: 58 Year
  Sex: Female

DRUGS (1)
  1. XALATAN [Suspect]
     Dosage: UNK

REACTIONS (6)
  - Pharyngeal oedema [Unknown]
  - Dysphagia [Unknown]
  - Influenza like illness [Unknown]
  - Back pain [Unknown]
  - Neck pain [Unknown]
  - Contusion [Unknown]
